FAERS Safety Report 24147615 (Version 1)
Quarter: 2024Q3

REPORT INFORMATION
  Report Type: Spontaneous
  Country: US (occurrence: US)
  Receive Date: 20240729
  Receipt Date: 20240729
  Transmission Date: 20241016
  Serious: Yes (Death, Hospitalization)
  Sender: LUPIN
  Company Number: US-LUPIN PHARMACEUTICALS INC.-2024-07059

PATIENT
  Age: 3 Week
  Sex: Female

DRUGS (5)
  1. AZITHROMYCIN [Suspect]
     Active Substance: AZITHROMYCIN
     Indication: Interstitial lung disease
     Dosage: UNK
     Route: 065
  2. HYDROXYCHLOROQUINE [Suspect]
     Active Substance: HYDROXYCHLOROQUINE
     Indication: Interstitial lung disease
     Dosage: UNK
     Route: 065
  3. DEXAMETHASONE [Suspect]
     Active Substance: DEXAMETHASONE
     Indication: Respiratory failure
     Dosage: UNK
     Route: 065
  4. METHYLPREDNISOLONE [Suspect]
     Active Substance: METHYLPREDNISOLONE
     Indication: Interstitial lung disease
     Dosage: 10 MILLIGRAM/KILOGRAM, QD
     Route: 042
  5. NITRIC OXIDE [Suspect]
     Active Substance: NITRIC OXIDE
     Indication: Respiratory failure
     Dosage: UNK

REACTIONS (2)
  - Drug ineffective for unapproved indication [Fatal]
  - Off label use [Unknown]
